FAERS Safety Report 5281260-4 (Version None)
Quarter: 2007Q1

REPORT INFORMATION
  Report Type: 
  Country: None (occurrence: None)
  Receive Date: 20061218
  Receipt Date: 20060316
  Transmission Date: 20070707
  Serious: Yes (Hospitalization)
  Sender: FDA-Public Use
  Company Number: US200603005101

PATIENT
  Sex: Female

DRUGS (2)
  1. HUMULIN L [Suspect]
     Indication: DIABETES MELLITUS
     Dates: start: 19820101
  2. INSULIN, ANIMAL (INSULIN, ANIMAL UNKNOWN FORMULATION) UNKNOWN [Suspect]
     Indication: DIABETES MELLITUS
     Dates: start: 19680101

REACTIONS (2)
  - BLOOD GLUCOSE INCREASED [None]
  - DRUG EXPOSURE DURING PREGNANCY [None]
